FAERS Safety Report 5488334-3 (Version None)
Quarter: 2007Q4

REPORT INFORMATION
  Report Type: 
  Country: None (occurrence: None)
  Receive Date: 20071005
  Receipt Date: 20070815
  Transmission Date: 20080405
  Serious: No
  Sender: FDA-Public Use
  Company Number: PHEH2007US11236

PATIENT
  Sex: Male

DRUGS (1)
  1. TEKURNA(ALISKIREN) TABLET [Suspect]
     Indication: HYPERTENSION
     Dosage: 300 MG, ORAL
     Route: 048

REACTIONS (2)
  - DIARRHOEA [None]
  - HEART RATE IRREGULAR [None]
